FAERS Safety Report 7853128 (Version 6)
Quarter: 2012Q4

REPORT INFORMATION
  Report Type: 
  Country: US (occurrence: US)
  Receive Date: 20110311
  Receipt Date: 20121106
  Transmission Date: 20130627
  Serious: Yes (Hospitalization, Disabling, Other)
  Sender: FDA-Public Use
  Company Number: US-009507513-1103USA00839

PATIENT

DRUGS (8)
  1. FOSAMAX [Suspect]
     Indication: OSTEOPENIA
     Dosage: 10 mg, UNK
     Route: 048
     Dates: start: 199904, end: 200101
  2. FOSAMAX [Suspect]
     Indication: OSTEOPOROSIS
     Dosage: 70 mg, QW
     Route: 048
     Dates: start: 200101, end: 200803
  3. FOSAMAX [Suspect]
     Indication: OSTEOPENIA
     Dosage: 70 mg, UNK
     Route: 048
     Dates: start: 20080306, end: 20081106
  4. FOSAMAX [Suspect]
     Indication: OSTEOPOROSIS
  5. CALCIUM (UNSPECIFIED) [Concomitant]
     Dosage: 1500 mg, UNK
     Dates: start: 1985
  6. VITAMIN D (UNSPECIFIED) [Concomitant]
     Dosage: 800-1000
     Dates: start: 19990101, end: 20100101
  7. FOSAMAX [Suspect]
     Indication: OSTEOPENIA
     Dosage: 70 mg, UNK
     Route: 048
     Dates: start: 20090110, end: 20090316
  8. FOSAMAX [Suspect]
     Indication: OSTEOPOROSIS

REACTIONS (16)
  - Open reduction of fracture [Not Recovered/Not Resolved]
  - Femur fracture [Not Recovered/Not Resolved]
  - Osteoarthritis [Unknown]
  - Upper limb fracture [Unknown]
  - Humerus fracture [Unknown]
  - Low turnover osteopathy [Not Recovered/Not Resolved]
  - Fall [Unknown]
  - Calculus ureteric [Unknown]
  - Vitamin D deficiency [Unknown]
  - Nephrolithiasis [Unknown]
  - Diverticulum intestinal [Unknown]
  - Haemorrhoids [Unknown]
  - Colon adenoma [Unknown]
  - Diverticulum intestinal [Unknown]
  - Hyperlipidaemia [Unknown]
  - Hypoaesthesia [Unknown]
